FAERS Safety Report 17743262 (Version 2)
Quarter: 2020Q3

REPORT INFORMATION
  Report Type: Report from Study
  Country: BR (occurrence: BR)
  Receive Date: 20200504
  Receipt Date: 20200806
  Transmission Date: 20201102
  Serious: Yes (Life-Threatening, Other)
  Sender: FDA-Public Use
  Company Number: PHHY2017BR102114

PATIENT
  Sex: Female
  Weight: 79 kg

DRUGS (15)
  1. FUROSEMIDE. [Concomitant]
     Active Substance: FUROSEMIDE
     Indication: FLUID RETENTION
  2. SALBUTAMOL [Concomitant]
     Active Substance: ALBUTEROL
     Indication: ASTHMA
     Dosage: 100 UG, UNK
     Route: 065
  3. SYMBICORT [Concomitant]
     Active Substance: BUDESONIDE\FORMOTEROL FUMARATE DIHYDRATE
     Indication: ASTHMA
     Dosage: 3 DF, QD, FOR 1 YEAR
     Route: 055
  4. AEROLIN [Concomitant]
     Active Substance: ALBUTEROL
     Indication: ASTHMA
     Dosage: 1 MG, UNK
     Route: 055
     Dates: start: 2011
  5. HYPERIUM [Concomitant]
     Active Substance: RILMENIDINE PHOSPHATE
     Indication: HYPERTENSION
     Dosage: 1 DF, QD
     Route: 048
     Dates: start: 2010
  6. PREDNISONE. [Concomitant]
     Active Substance: PREDNISONE
     Indication: ASTHMA
     Dosage: 1 DF, QD, FOR 3 YEARS
     Route: 048
  7. MIFLONIDE [Suspect]
     Active Substance: BUDESONIDE
     Indication: ASTHMA
     Dosage: 400 UG, QD, FOR 2 YEARS
     Route: 055
  8. ALENIA [Concomitant]
     Indication: ASTHMA
     Dosage: 4 ASPIRATION, QD
     Route: 055
  9. SPIRIVA [Concomitant]
     Active Substance: TIOTROPIUM BROMIDE MONOHYDRATE
     Indication: ASTHMA
     Dosage: 2.5 UG, UNK
     Route: 055
  10. XOLAIR [Suspect]
     Active Substance: OMALIZUMAB
     Indication: ASTHMA
     Dosage: 150 MG, QMO
     Route: 058
     Dates: start: 2011
  11. OMEPRAZOLE. [Concomitant]
     Active Substance: OMEPRAZOLE
     Indication: GASTRITIS PROPHYLAXIS
     Dosage: 2 DF, QD, FOR THREE YEARS
     Route: 048
  12. CENTRUM [Concomitant]
     Active Substance: VITAMINS
     Indication: VITAMIN SUPPLEMENTATION
     Dosage: 1 DF, QD, FOR  4 YEARS
     Route: 065
  13. FUROSEMIDE. [Concomitant]
     Active Substance: FUROSEMIDE
     Indication: HYPERTENSION
     Dosage: 2 DF, FOR 1 YEAR
     Route: 048
  14. SINGULAIR [Concomitant]
     Active Substance: MONTELUKAST SODIUM
     Indication: ASTHMA
     Dosage: 1 DF, QD
     Route: 048
     Dates: start: 2009
  15. PANTOPRAZOLE [Concomitant]
     Active Substance: PANTOPRAZOLE
     Indication: GASTROOESOPHAGEAL REFLUX DISEASE
     Dosage: 2 DF, QD
     Route: 048
     Dates: start: 2012

REACTIONS (18)
  - Cardio-respiratory arrest [Unknown]
  - Steroid diabetes [Recovering/Resolving]
  - Cardiac failure [Recovering/Resolving]
  - Illness [Unknown]
  - Vocal cord dysfunction [Unknown]
  - Cardiomyopathy [Unknown]
  - Oedema peripheral [Unknown]
  - Laryngospasm [Unknown]
  - Dysphonia [Unknown]
  - Maternal exposure during pregnancy [Unknown]
  - Asthenia [Unknown]
  - Perinatal depression [Recovering/Resolving]
  - Hypovolaemia [Unknown]
  - High risk pregnancy [Unknown]
  - Sinus node dysfunction [Unknown]
  - Pharyngeal disorder [Unknown]
  - Dyspnoea [Unknown]
  - Premature delivery [Unknown]

NARRATIVE: CASE EVENT DATE: 2014
